FAERS Safety Report 6840078-9 (Version None)
Quarter: 2010Q3

REPORT INFORMATION
  Report Type: 
  Country: None (occurrence: None)
  Receive Date: 20100714
  Receipt Date: 20100709
  Transmission Date: 20110219
  Serious: No
  Sender: FDA-Public Use
  Company Number: BR-ROCHE-714646

PATIENT
  Sex: Female
  Weight: 55 kg

DRUGS (4)
  1. ROACUTAN [Suspect]
     Indication: ACNE
     Route: 065
     Dates: start: 19990101, end: 19990101
  2. ROACUTAN [Suspect]
     Dosage: STRENGTH: 20 MG
     Route: 065
     Dates: start: 20090501, end: 20100407
  3. FRONTAL [Concomitant]
     Indication: ANXIETY
     Dosage: MANUFACTURER: PFIZER
  4. LEXAPRO [Concomitant]
     Indication: DEPRESSION
     Dosage: MANUFACTURER: LUNDBECK

REACTIONS (2)
  - NO ADVERSE EVENT [None]
  - PREGNANCY [None]
